FAERS Safety Report 8126673-8 (Version None)
Quarter: 2012Q1

REPORT INFORMATION
  Report Type: 
  Country: None (occurrence: None)
  Receive Date: 20120210
  Receipt Date: 20120131
  Transmission Date: 20120608
  Serious: No
  Sender: FDA-Public Use
  Company Number: US-BIOGENIDEC-2012BI004031

PATIENT
  Age: 41 Year
  Sex: Female

DRUGS (1)
  1. TYSABRI [Suspect]
     Indication: MULTIPLE SCLEROSIS
     Route: 042
     Dates: start: 20090723

REACTIONS (7)
  - PAIN IN EXTREMITY [None]
  - ANGER [None]
  - FATIGUE [None]
  - DYSARTHRIA [None]
  - AMNESIA [None]
  - NEUROPATHY PERIPHERAL [None]
  - PARAESTHESIA [None]
